FAERS Safety Report 9071136 (Version 2)
Quarter: 2013Q1

REPORT INFORMATION
  Report Type: Spontaneous
  Country: JP (occurrence: JP)
  Receive Date: 20130129
  Receipt Date: 20130222
  Transmission Date: 20140127
  Serious: Yes (Hospitalization)
  Sender: FDA-Public Use
  Company Number: JP-ASTRAZENECA-2013SE05695

PATIENT
  Sex: 0

DRUGS (1)
  1. ECARD [Suspect]
     Indication: HYPERTENSION
     Route: 048

REACTIONS (1)
  - Renal disorder [Recovering/Resolving]
